FAERS Safety Report 5181083-0 (Version None)
Quarter: 2006Q4

REPORT INFORMATION
  Report Type: 
  Country: None (occurrence: None)
  Receive Date: 20061218
  Receipt Date: 20061218
  Transmission Date: 20070319
  Serious: Yes (Other)
  Sender: FDA-Public Use
  Company Number: None

PATIENT
  Age: 37 Year
  Sex: Female
  Weight: 127.0072 kg

DRUGS (3)
  1. ENBREL [Suspect]
     Indication: PSORIASIS
     Dosage: 50 MG 2 X PER WEEK SQ
     Route: 058
     Dates: start: 20061118, end: 20061212
  2. CLINDAMYCIN [Suspect]
     Indication: SINUSITIS
     Dosage: 300 MG EVERY 6 HOURS PO
     Route: 048
     Dates: start: 20061215, end: 20061216
  3. LEVAQUIN [Concomitant]

REACTIONS (3)
  - HALLUCINATION [None]
  - SINUSITIS [None]
  - THROAT IRRITATION [None]
